FAERS Safety Report 17656483 (Version 1)
Quarter: 2020Q2

REPORT INFORMATION
  Report Type: Spontaneous
  Country: US (occurrence: US)
  Receive Date: 20200410
  Receipt Date: 20200410
  Transmission Date: 20200713
  Serious: No
  Sender: FDA-Public Use
  Company Number: US-VERTEX PHARMACEUTICALS-2020-007130

PATIENT
  Age: 45 Year
  Sex: Female

DRUGS (1)
  1. TRIKAFTA [Suspect]
     Active Substance: ELEXACAFTOR\IVACAFTOR\TEZACAFTOR
     Indication: CYSTIC FIBROSIS
     Dosage: 100/50/75MG X 2 AND 150MG, BID
     Route: 048
     Dates: start: 2019

REACTIONS (5)
  - Pruritus [Not Recovered/Not Resolved]
  - Hordeolum [Unknown]
  - Pulmonary function test decreased [Unknown]
  - Sinusitis [Unknown]
  - Fungal infection [Recovered/Resolved]

NARRATIVE: CASE EVENT DATE: 2019
